FAERS Safety Report 11000127 (Version 1)
Quarter: 2015Q2

REPORT INFORMATION
  Report Type: Spontaneous
  Country: US (occurrence: US)
  Receive Date: 20150408
  Receipt Date: 20150408
  Transmission Date: 20150821
  Serious: No
  Sender: FDA-Public Use
  Company Number: US-SA-2014SA099262

PATIENT
  Age: 52 Year
  Sex: Female

DRUGS (3)
  1. ALLEGRA [Suspect]
     Active Substance: FEXOFENADINE HYDROCHLORIDE
     Indication: ALLERGY TO ANIMAL
     Route: 048
     Dates: start: 20140719, end: 20140719
  2. ALCOHOL. [Suspect]
     Active Substance: ALCOHOL
     Route: 065
  3. ALLEGRA [Suspect]
     Active Substance: FEXOFENADINE HYDROCHLORIDE
     Indication: ALLERGY TO ANIMAL
     Route: 048

REACTIONS (4)
  - Abdominal discomfort [Recovered/Resolved]
  - Diarrhoea [Recovered/Resolved]
  - Fatigue [Recovered/Resolved]
  - Dizziness [Recovered/Resolved]

NARRATIVE: CASE EVENT DATE: 20140719
